FAERS Safety Report 25569840 (Version 2)
Quarter: 2025Q3

REPORT INFORMATION
  Report Type: Spontaneous
  Country: US (occurrence: US)
  Receive Date: 20250717
  Receipt Date: 20250822
  Transmission Date: 20251021
  Serious: No
  Sender: ALEXION PHARMACEUTICALS
  Company Number: US-AstraZeneca-CH-00908284AP

PATIENT
  Age: 60 Year
  Sex: Female

DRUGS (2)
  1. TEZSPIRE [Suspect]
     Active Substance: TEZEPELUMAB-EKKO
     Indication: Dyspnoea
     Dosage: 210 MILLIGRAM, QMONTH
     Route: 065
     Dates: start: 20250509
  2. TEZSPIRE [Suspect]
     Active Substance: TEZEPELUMAB-EKKO

REACTIONS (3)
  - Illness [Unknown]
  - Device malfunction [Unknown]
  - Asthma [Unknown]

NARRATIVE: CASE EVENT DATE: 20250310
